FAERS Safety Report 19396477 (Version 1)
Quarter: 2021Q2

REPORT INFORMATION
  Report Type: Spontaneous
  Country: CH (occurrence: CH)
  Receive Date: 20210610
  Receipt Date: 20210610
  Transmission Date: 20210717
  Serious: Yes (Other)
  Sender: FDA-Public Use
  Company Number: CH-STEMLINE THERAPEUTICS, INC.-2021ST000026

PATIENT
  Sex: Female

DRUGS (1)
  1. ELZONRIS [Suspect]
     Active Substance: TAGRAXOFUSP-ERZS
     Indication: BLASTIC PLASMACYTOID DENDRITIC CELL NEOPLASIA
     Route: 042

REACTIONS (3)
  - Dyspnoea [Unknown]
  - Capillary leak syndrome [Unknown]
  - Tumour lysis syndrome [Unknown]
